FAERS Safety Report 8646851 (Version 2)
Quarter: 2012Q4

REPORT INFORMATION
  Report Type: 
  Country: US (occurrence: US)
  Receive Date: 20120703
  Receipt Date: 20120925
  Transmission Date: 20130627
  Serious: Yes (Hospitalization)
  Sender: FDA-Public Use
  Company Number: US-SANOFI-AVENTIS-2012SA031942

PATIENT
  Age: 58 Year
  Sex: Male

DRUGS (21)
  1. LASIX [Suspect]
     Route: 042
     Dates: start: 201203, end: 201203
  2. LASIX [Suspect]
     Route: 042
     Dates: start: 20120401, end: 20120401
  3. LASIX [Suspect]
     Route: 042
     Dates: start: 20120414
  4. BLINDED THERAPY [Concomitant]
     Indication: TYPE 2 DIABETES MELLITUS
     Dates: start: 20100821
  5. METFORMIN [Concomitant]
     Indication: TYPE 2 DIABETES MELLITUS
  6. LANTUS [Concomitant]
     Indication: TYPE 2 DIABETES MELLITUS
  7. ACTOS /USA/ [Concomitant]
     Indication: TYPE 2 DIABETES MELLITUS
  8. NOVOLOG [Concomitant]
  9. BETA BLOCKING AGENTS [Concomitant]
  10. ALDOSTERONE [Concomitant]
  11. CALCIUM CHANNEL BLOCKERS [Concomitant]
  12. DIURETICS [Concomitant]
  13. ANGIOTENSIN II [Concomitant]
  14. GLYCERYL TRINITRATE [Concomitant]
  15. PLATELET AGGREGATION INHIBITORS [Concomitant]
  16. CHOLESTEROL- AND TRIGLYCERIDE REDUCERS [Concomitant]
  17. ASPIRIN [Concomitant]
  18. EZETIMIBE [Concomitant]
  19. ANTIARRHYTHMICS, CLASS I AND III [Concomitant]
  20. ANTIHYPERTENSIVES [Concomitant]
  21. ALL OTHER THERAPEUTIC PRODUCTS [Concomitant]

REACTIONS (5)
  - Non-cardiac chest pain [Not Recovered/Not Resolved]
  - Prostate cancer metastatic [Not Recovered/Not Resolved]
  - Renal impairment [Recovered/Resolved]
  - Renal failure acute [Recovering/Resolving]
  - Oedema peripheral [Recovering/Resolving]
